FAERS Safety Report 6582147-7 (Version None)
Quarter: 2010Q1

REPORT INFORMATION
  Report Type: 
  Country: None (occurrence: None)
  Receive Date: 20100212
  Receipt Date: 20100212
  Transmission Date: 20100710
  Serious: No
  Sender: FDA-Public Use
  Company Number: None

PATIENT
  Sex: Female
  Weight: 52.1637 kg

DRUGS (4)
  1. BUPROPION HCL [Suspect]
     Indication: ANXIETY
     Dosage: 150MG 1XDAY ORAL TABLET
     Route: 048
     Dates: start: 20090201, end: 20100101
  2. BUPROPION HCL [Suspect]
     Indication: DEPRESSION
     Dosage: 150MG 1XDAY ORAL TABLET
     Route: 048
     Dates: start: 20090201, end: 20100101
  3. FLUOXETINE [Suspect]
     Indication: ANXIETY
     Dosage: 20MG 1XDAY ORAL CAPSULE
     Route: 048
     Dates: start: 20090201, end: 20100101
  4. FLUOXETINE [Suspect]
     Indication: DEPRESSION
     Dosage: 20MG 1XDAY ORAL CAPSULE
     Route: 048
     Dates: start: 20090201, end: 20100101

REACTIONS (1)
  - LACTATION DISORDER [None]
